FAERS Safety Report 21693269 (Version 1)
Quarter: 2022Q4

REPORT INFORMATION
  Report Type: Report from Study
  Country: BR (occurrence: BR)
  Receive Date: 20221207
  Receipt Date: 20221207
  Transmission Date: 20230113
  Serious: Yes (Other)
  Sender: FDA-Public Use
  Company Number: BR-MYLANLABS-2022M1134189

PATIENT
  Age: 60 Year
  Sex: Female
  Weight: 77 kg

DRUGS (9)
  1. VENLAFAXINE HYDROCHLORIDE [Suspect]
     Active Substance: VENLAFAXINE HYDROCHLORIDE
     Indication: Depression
     Dosage: 37.5 MILLIGRAM, BID, 00375 GRAM
     Route: 048
     Dates: start: 202208
  2. VENLAFAXINE HYDROCHLORIDE [Suspect]
     Active Substance: VENLAFAXINE HYDROCHLORIDE
     Indication: Anxiety
  3. PREGABALIN [Concomitant]
     Active Substance: PREGABALIN
     Indication: Pain
     Dosage: 150 MILLIGRAM, QD
     Route: 048
     Dates: start: 202208
  4. CYCLOBENZAPRINE [Concomitant]
     Active Substance: CYCLOBENZAPRINE
     Indication: Pain
     Dosage: 20 MILLIGRAM, QD
     Route: 048
     Dates: start: 202208
  5. TIBOLONE [Concomitant]
     Active Substance: TIBOLONE
     Indication: Hormone replacement therapy
     Dosage: 125 MILLIGRAM, QD
     Route: 048
     Dates: start: 202209
  6. INDAPAMIDE [Concomitant]
     Active Substance: INDAPAMIDE
     Indication: Hypertension
     Dosage: 1.5 MILLIGRAM, QD, 00015 GRAM, QD
     Route: 048
     Dates: start: 2018
  7. INDAPAMIDE [Concomitant]
     Active Substance: INDAPAMIDE
     Indication: Fluid retention
  8. VENLAFAXINE [Concomitant]
     Active Substance: VENLAFAXINE HYDROCHLORIDE
     Indication: Depression
     Dosage: UNK
     Route: 065
  9. VENLAFAXINE [Concomitant]
     Active Substance: VENLAFAXINE HYDROCHLORIDE
     Indication: Anxiety

REACTIONS (6)
  - Systemic lupus erythematosus [Unknown]
  - Syncope [Unknown]
  - Weight increased [Unknown]
  - Cold sweat [Unknown]
  - Malaise [Unknown]
  - Inappropriate schedule of product administration [Unknown]

NARRATIVE: CASE EVENT DATE: 20220901
